FAERS Safety Report 16489260 (Version 1)
Quarter: 2019Q2

REPORT INFORMATION
  Report Type: Spontaneous
  Country: US (occurrence: US)
  Receive Date: 20190628
  Receipt Date: 20190628
  Transmission Date: 20190711
  Serious: No
  Sender: FDA-Public Use
  Company Number: US-ACCORD-097277

PATIENT
  Age: 54 Year
  Sex: Female
  Weight: 68.04 kg

DRUGS (3)
  1. CLONAZEPAM ACCORD [Suspect]
     Active Substance: CLONAZEPAM
     Indication: ANXIETY
     Dosage: EVERY MORNING FOR 25 YEARS
     Dates: start: 201810, end: 201810
  2. SERTRALINE [Concomitant]
     Active Substance: SERTRALINE HYDROCHLORIDE
  3. FENOFIBRATE. [Concomitant]
     Active Substance: FENOFIBRATE

REACTIONS (5)
  - Taste disorder [Recovered/Resolved]
  - Off label use [Unknown]
  - Product substitution issue [Recovered/Resolved]
  - Irritability [Recovered/Resolved]
  - Anger [Recovered/Resolved]
